FAERS Safety Report 15905725 (Version 1)
Quarter: 2019Q1

REPORT INFORMATION
  Report Type: Spontaneous
  Country: GB (occurrence: GB)
  Receive Date: 20190204
  Receipt Date: 20190204
  Transmission Date: 20190417
  Serious: Yes (Death, Hospitalization)
  Sender: FDA-Public Use
  Company Number: GB-MYLANLABS-2019M1009455

PATIENT
  Age: 25 Year
  Sex: Female

DRUGS (2)
  1. DANTROLENE. [Suspect]
     Active Substance: DANTROLENE SODIUM
     Indication: CHEMICAL POISONING
     Dosage: 2.5 MILLIGRAM/KILOGRAM
     Route: 042
  2. PARACETAMOL [Suspect]
     Active Substance: ACETAMINOPHEN
     Indication: HYPERTHERMIA
     Route: 065

REACTIONS (1)
  - Drug ineffective [Fatal]
